FAERS Safety Report 17124108 (Version 3)
Quarter: 2020Q1

REPORT INFORMATION
  Report Type: Spontaneous
  Country: US (occurrence: US)
  Receive Date: 20191206
  Receipt Date: 20200117
  Transmission Date: 20200409
  Serious: Yes (Hospitalization, Other)
  Sender: FDA-Public Use
  Company Number: US-SA-2016SA235982

PATIENT
  Age: 10 Month
  Sex: Female

DRUGS (6)
  1. CEFTRIAXONE SODIUM. [Suspect]
     Active Substance: CEFTRIAXONE SODIUM
     Dosage: UNK UNK, UNK
     Route: 065
  2. ALDURAZYME [Suspect]
     Active Substance: LARONIDASE
     Dosage: 5.8 MG,QW
     Route: 041
     Dates: start: 201707
  3. ALDURAZYME [Suspect]
     Active Substance: LARONIDASE
     Dosage: 5.8 MG,QW
     Route: 041
     Dates: start: 2017
  4. ALDURAZYME [Suspect]
     Active Substance: LARONIDASE
     Dosage: 8.7 MG, QW
     Route: 041
     Dates: start: 20170111
  5. ALDURAZYME [Suspect]
     Active Substance: LARONIDASE
     Dosage: 5.8 MG,QW
     Route: 041
     Dates: start: 2017
  6. ALDURAZYME [Suspect]
     Active Substance: LARONIDASE
     Indication: MUCOPOLYSACCHARIDOSIS I
     Dosage: 8.7 MG,QW
     Route: 041
     Dates: start: 20161219, end: 2017

REACTIONS (10)
  - Lumbar puncture [Unknown]
  - Gastrointestinal tube insertion [Unknown]
  - Ear tube insertion [Unknown]
  - Pyrexia [Unknown]
  - Haematochezia [Unknown]
  - Hospitalisation [Recovering/Resolving]
  - Catheter site thrombosis [Unknown]
  - Central venous catheterisation [Unknown]
  - Vomiting [Unknown]
  - Drug eruption [Unknown]

NARRATIVE: CASE EVENT DATE: 201612
